FAERS Safety Report 5032981-X (Version None)
Quarter: 2006Q2

REPORT INFORMATION
  Report Type: 
  Country: None (occurrence: None)
  Receive Date: 20060620
  Receipt Date: 20060607
  Transmission Date: 20061013
  Serious: Yes (Hospitalization)
  Sender: FDA-Public Use
  Company Number: A-US2006-12441

PATIENT
  Age: 62 Year
  Sex: Female
  Weight: 76.2 kg

DRUGS (16)
  1. TRACLEER [Suspect]
     Indication: PULMONARY HYPERTENSION
     Dosage: SEE IMAGE
     Route: 048
     Dates: start: 20051220, end: 20060202
  2. TRACLEER [Suspect]
     Indication: PULMONARY HYPERTENSION
     Dosage: SEE IMAGE
     Route: 048
     Dates: start: 20060202
  3. FOSAMAX [Concomitant]
  4. SPIRIVA [Concomitant]
  5. XOLAIR [Concomitant]
  6. SINGULAIR [Concomitant]
  7. ZIRTEC (CETIRIZINE HYDROCHLORIDE) [Concomitant]
  8. PREDNISONE [Concomitant]
  9. DUONEB [Concomitant]
  10. PROTONIX [Concomitant]
  11. LANTUS [Concomitant]
  12. NORVASC [Concomitant]
  13. GLUCOPHAGE [Concomitant]
  14. FLOVENT [Concomitant]
  15. ALBUTEROL [Concomitant]
  16. FORADIL [Concomitant]

REACTIONS (6)
  - ALANINE AMINOTRANSFERASE INCREASED [None]
  - ASPARTATE AMINOTRANSFERASE INCREASED [None]
  - ASTHENIA [None]
  - BLOOD ALKALINE PHOSPHATASE INCREASED [None]
  - NAUSEA [None]
  - PYREXIA [None]
